APPROVED DRUG PRODUCT: RISPERIDONE
Active Ingredient: RISPERIDONE
Strength: 12.5MG/VIAL
Dosage Form/Route: POWDER;INTRAMUSCULAR
Application: A214068 | Product #001 | TE Code: AB
Applicant: TEVA PHARMACEUTICALS USA INC
Approved: Dec 5, 2023 | RLD: No | RS: No | Type: RX